FAERS Safety Report 6040201-2 (Version None)
Quarter: 2009Q1

REPORT INFORMATION
  Report Type: 
  Country: None (occurrence: None)
  Receive Date: 20090116
  Receipt Date: 20080111
  Transmission Date: 20090719
  Serious: No
  Sender: FDA-Public Use
  Company Number: US-BRISTOL-MYERS SQUIBB COMPANY-14038145

PATIENT
  Age: 56 Year
  Sex: Male
  Weight: 98 kg

DRUGS (17)
  1. ABILIFY [Suspect]
     Indication: BIPOLAR DISORDER
     Route: 048
     Dates: end: 20070501
  2. GLYBURIDE [Concomitant]
  3. SIMVASTATIN [Concomitant]
  4. NEXIUM [Concomitant]
  5. AGGRENOX [Concomitant]
  6. LOTREL [Concomitant]
  7. METOPROLOL TARTRATE [Concomitant]
  8. HYDROCHLOROTHIAZIDE [Concomitant]
  9. SODIUM BICARBONATE [Concomitant]
  10. ALPRAZOLAM [Concomitant]
  11. MINOXIDIL [Concomitant]
  12. HYDROCODONE WITH TYLENOL [Concomitant]
  13. BACLOFEN [Concomitant]
  14. LYRICA [Concomitant]
  15. ALLOPURINOL [Concomitant]
  16. IBUPROFEN [Concomitant]
  17. BENAZEPRIL HYDROCHLORIDE [Concomitant]

REACTIONS (1)
  - BLOOD PRESSURE INCREASED [None]
